FAERS Safety Report 4469182-X (Version None)
Quarter: 2004Q4

REPORT INFORMATION
  Report Type: 
  Country: None (occurrence: None)
  Receive Date: 20041005
  Receipt Date: 20041005
  Transmission Date: 20050328
  Serious: Yes (Hospitalization)
  Sender: FDA-Public Use
  Company Number: None

PATIENT
  Age: 59 Year
  Sex: Male
  Weight: 125.8 kg

DRUGS (7)
  1. OXACILLIN [Suspect]
     Indication: CELLULITIS
     Dosage: SEE IMAGE
     Route: 042
     Dates: start: 20040927, end: 20041001
  2. DICLOXACILLIN [Suspect]
     Indication: CELLULITIS
     Dosage: SEE IMAGE
     Route: 048
     Dates: start: 20041001, end: 20041003
  3. POTASSIUM CHLORIDE TAB [Concomitant]
  4. METFORMIN HCL [Concomitant]
  5. FUROSEMIDE [Concomitant]
  6. ENALAPRIL TAB [Concomitant]
  7. ALLOPURINOL TAB [Concomitant]

REACTIONS (2)
  - RASH [None]
  - VASCULITIS [None]
